FAERS Safety Report 9691868 (Version 2)
Quarter: 2016Q1

REPORT INFORMATION
  Report Type: Other
  Country: GB (occurrence: GB)
  Receive Date: 20131117
  Receipt Date: 20160226
  Transmission Date: 20160526
  Serious: Yes (Other)
  Sender: FDA-Public Use
  Company Number: GB-MYLANLABS-2013S1024741

PATIENT

DRUGS (5)
  1. BISOPROLOL [Suspect]
     Active Substance: BISOPROLOL
     Indication: PRODUCT USED FOR UNKNOWN INDICATION
     Dosage: 2.5 MG,(STARTED IN HOPSITAL)
     Route: 048
     Dates: start: 201211
  2. PRAVASTATIN [Suspect]
     Active Substance: PRAVASTATIN\PRAVASTATIN SODIUM
     Indication: DRUG ERUPTION
     Dosage: 40 MG,(STARTED IN HOPSITAL   )
     Route: 048
     Dates: start: 201211
  3. PRADAXA [Suspect]
     Active Substance: DABIGATRAN ETEXILATE MESYLATE
     Indication: CEREBROVASCULAR ACCIDENT
     Dosage: 110 MG,BID (STOPPED WHEN PATIENT IN HOSPITAL.)
     Route: 048
     Dates: start: 201212
  4. AMLODIPINE [Concomitant]
     Active Substance: AMLODIPINE BESYLATE
     Indication: HYPERTENSION
     Dosage: 5 MG,(CONTINUING)
     Route: 048
     Dates: start: 201103
  5. CLOPIDOGREL [Concomitant]
     Active Substance: CLOPIDOGREL BISULFATE
     Indication: PRODUCT USED FOR UNKNOWN INDICATION
     Dosage: 75 MG,(STARTED IN HOSPITAL)
     Route: 048
     Dates: end: 2012

REACTIONS (3)
  - Product use issue [Unknown]
  - Erythema [Not Recovered/Not Resolved]
  - Raynaud^s phenomenon [Not Recovered/Not Resolved]

NARRATIVE: CASE EVENT DATE: 20121226
